FAERS Safety Report 5705842-8 (Version None)
Quarter: 2008Q2

REPORT INFORMATION
  Report Type: 
  Country: None (occurrence: None)
  Receive Date: 20080411
  Receipt Date: 20080407
  Transmission Date: 20081010
  Serious: Yes (Hospitalization, Other)
  Sender: FDA-Public Use
  Company Number: 2008SP006654

PATIENT
  Age: 81 Year
  Sex: Male
  Weight: 82 kg

DRUGS (1)
  1. TEMODAR [Suspect]
     Indication: GLIOBLASTOMA MULTIFORME
     Dates: start: 20080221, end: 20080321

REACTIONS (10)
  - ANAEMIA [None]
  - CHILLS [None]
  - DEHYDRATION [None]
  - FATIGUE [None]
  - HAEMOPTYSIS [None]
  - HYPOALBUMINAEMIA [None]
  - HYPOCALCAEMIA [None]
  - HYPONATRAEMIA [None]
  - LYMPHOPENIA [None]
  - PNEUMONIA [None]
